FAERS Safety Report 9453297 (Version 1)
Quarter: 2013Q3

REPORT INFORMATION
  Report Type: Report from Study
  Country: US (occurrence: US)
  Receive Date: 20130812
  Receipt Date: 20130812
  Transmission Date: 20140515
  Serious: Yes (Hospitalization, Other)
  Sender: FDA-Public Use
  Company Number: US-SANOFI-AVENTIS-2013SA080055

PATIENT
  Sex: Female

DRUGS (1)
  1. AUBAGIO [Suspect]
     Route: 048

REACTIONS (5)
  - Cardiac disorder [Unknown]
  - Multiple sclerosis relapse [Unknown]
  - Visual impairment [Unknown]
  - Cognitive disorder [Unknown]
  - Pain in extremity [Recovered/Resolved]
